FAERS Safety Report 9426640 (Version 1)
Quarter: 2013Q3

REPORT INFORMATION
  Report Type: Spontaneous
  Country: AU (occurrence: AU)
  Receive Date: 20130730
  Receipt Date: 20130730
  Transmission Date: 20140515
  Serious: Yes (Hospitalization)
  Sender: FDA-Public Use
  Company Number: AU-B.I. PHARMACEUTICALS,INC./RIDGEFIELD-2013-AU-00928AU

PATIENT
  Age: 8 Day
  Sex: Male

DRUGS (1)
  1. PRADAXA [Suspect]

REACTIONS (2)
  - Cardiac failure congestive [Recovered/Resolved]
  - Fluid retention [Recovered/Resolved]
